FAERS Safety Report 20773454 (Version 1)
Quarter: 2022Q2

REPORT INFORMATION
  Report Type: Spontaneous
  Country: US (occurrence: None)
  Receive Date: 20220502
  Receipt Date: 20220502
  Transmission Date: 20220721
  Serious: Yes (Other)
  Sender: FDA-Public Use
  Company Number: US-ROCHE-3086904

PATIENT
  Age: 60 Year
  Sex: Female
  Weight: 71.2 kg

DRUGS (6)
  1. RITUXAN [Suspect]
     Active Substance: RITUXIMAB
     Indication: Mantle cell lymphoma
     Route: 041
     Dates: start: 20210629
  2. RITUXAN HYCELA [Suspect]
     Active Substance: HYALURONIDASE (HUMAN RECOMBINANT)\RITUXIMAB
     Indication: Mantle cell lymphoma
     Route: 058
     Dates: start: 20220127
  3. XOLAIR [Suspect]
     Active Substance: OMALIZUMAB
     Indication: Mantle cell lymphoma
     Route: 042
     Dates: start: 20210629
  4. XOLAIR [Suspect]
     Active Substance: OMALIZUMAB
  5. XOLAIR [Suspect]
     Active Substance: OMALIZUMAB
  6. ACYCLOVIR [Concomitant]
     Active Substance: ACYCLOVIR
     Route: 048

REACTIONS (5)
  - Lipoma [Recovered/Resolved]
  - Therapy interrupted [Not Recovered/Not Resolved]
  - Hypothyroidism [Unknown]
  - Intentional product use issue [Unknown]
  - Product storage error [Unknown]

NARRATIVE: CASE EVENT DATE: 20220414
